FAERS Safety Report 9895192 (Version 9)
Quarter: 2015Q2

REPORT INFORMATION
  Report Type: Report from Study
  Country: US (occurrence: US)
  Receive Date: 20140213
  Receipt Date: 20150513
  Transmission Date: 20150821
  Serious: Yes (Hospitalization)
  Sender: FDA-Public Use
  Company Number: US-ACTELION-A-NJ2014-94853

PATIENT
  Age: 78 Year
  Sex: Female

DRUGS (25)
  1. COUMADIN [Concomitant]
     Active Substance: WARFARIN SODIUM
     Dosage: 4 MG, QD
  2. DILTIAZEM [Concomitant]
     Active Substance: DILTIAZEM
     Dosage: 240 MG, QD
  3. CLOPIDOGREL [Concomitant]
     Active Substance: CLOPIDOGREL BISULFATE
     Dosage: 15 MG, QD
  4. LUTEIN [Concomitant]
     Active Substance: LUTEIN
     Dosage: 20 MG, UNK
     Route: 048
  5. VENTAVIS [Suspect]
     Active Substance: ILOPROST
     Dosage: 6-9X/DAY
     Route: 055
  6. BENTYL [Concomitant]
     Active Substance: DICYCLOMINE HYDROCHLORIDE
     Dosage: 20 UNK, BID
  7. ZOFRAN [Concomitant]
     Active Substance: ONDANSETRON HYDROCHLORIDE
     Dosage: 8 MG, PRN
  8. COREG [Concomitant]
     Active Substance: CARVEDILOL
     Dosage: 6.25 MG, BID
     Route: 048
  9. ASPIRIN. [Concomitant]
     Active Substance: ASPIRIN
  10. NITROGLYCERIN. [Concomitant]
     Active Substance: NITROGLYCERIN
     Dosage: 0.4 MG, PRN
  11. VITRON C [Concomitant]
     Active Substance: DIETARY SUPPLEMENT
     Dosage: UNK
  12. PRILOSEC [Concomitant]
     Active Substance: OMEPRAZOLE MAGNESIUM
     Dosage: 20 MG, QD
     Route: 048
  13. VENTAVIS [Suspect]
     Active Substance: ILOPROST
     Dosage: 5 MCG, 6 X DAY
     Route: 055
  14. TRACLEER [Suspect]
     Active Substance: BOSENTAN\BOSENTAN MONOHYDRATE
     Indication: PULMONARY ARTERIAL HYPERTENSION
     Dosage: 125 MG, BID
     Route: 048
  15. REVATIO [Concomitant]
     Active Substance: SILDENAFIL CITRATE
     Dosage: 40 MG, TID
  16. TORSEMIDE. [Concomitant]
     Active Substance: TORSEMIDE
     Dosage: 10 MG, BID
  17. XANAX [Concomitant]
     Active Substance: ALPRAZOLAM
     Dosage: 0.5 MG, TID PRN
  18. ROCALTROL [Concomitant]
     Active Substance: CALCITRIOL
     Dosage: 0.25 MCG, Q3WEEK
  19. SEROQUEL [Concomitant]
     Active Substance: QUETIAPINE FUMARATE
     Dosage: 25 MG, QPM
  20. TRACLEER [Suspect]
     Active Substance: BOSENTAN\BOSENTAN MONOHYDRATE
     Dosage: 120 MG, BID
     Route: 048
  21. GLIPIZIDE. [Concomitant]
     Active Substance: GLIPIZIDE
     Dosage: 2.5 MG, QD
  22. SYNTHROID [Concomitant]
     Active Substance: LEVOTHYROXINE SODIUM
     Dosage: 0.88 MG, QD
  23. APRESOLINE HYDROCHLORIDE [Concomitant]
     Active Substance: HYDRALAZINE HYDROCHLORIDE
     Dosage: 100 MG, TID
  24. VITAMIN D3 [Concomitant]
     Active Substance: CHOLECALCIFEROL
     Dosage: UNK, QD
  25. VENTAVIS [Suspect]
     Active Substance: ILOPROST
     Indication: PULMONARY ARTERIAL HYPERTENSION
     Dosage: 5 MCG, 6 X DAY
     Route: 055
     Dates: start: 20061009

REACTIONS (15)
  - Heparin-induced thrombocytopenia [Recovering/Resolving]
  - Weight decreased [Unknown]
  - Cardiac failure congestive [Recovering/Resolving]
  - Swelling [Recovering/Resolving]
  - Dyspnoea [Recovering/Resolving]
  - Pleural effusion [Recovering/Resolving]
  - Atrial fibrillation [Recovering/Resolving]
  - Pulmonary hypertension [Unknown]
  - Generalised oedema [Recovering/Resolving]
  - Cardiac disorder [Recovering/Resolving]
  - Respiratory tract inflammation [Recovering/Resolving]
  - Acute kidney injury [Unknown]
  - Urinary tract infection [Recovering/Resolving]
  - Haematuria [Recovered/Resolved]
  - Asthenia [Recovered/Resolved]

NARRATIVE: CASE EVENT DATE: 20141009
